FAERS Safety Report 8570334-8 (Version None)
Quarter: 2012Q3

REPORT INFORMATION
  Report Type: 
  Country: None (occurrence: None)
  Receive Date: 20120803
  Receipt Date: 20120731
  Transmission Date: 20120928
  Serious: Yes (Death, Life-Threatening, Hospitalization, Other)
  Sender: FDA-Public Use
  Company Number: MX-B.I. PHARMACEUTICALS,INC./RIDGEFIELD-2012-MX-00193MX

PATIENT
  Sex: Female
  Weight: 63 kg

DRUGS (5)
  1. ELEQUINE [Concomitant]
     Indication: PROPHYLAXIS
     Dosage: 500MG EVERY 24HRS
     Route: 048
     Dates: start: 20100721, end: 20100729
  2. DABIGATRAN ETEXILATE [Suspect]
     Indication: THROMBOSIS PROPHYLAXIS
     Dosage: 150 MG
     Route: 048
     Dates: start: 20100722, end: 20100729
  3. WOBENZYM [Concomitant]
     Dosage: ONE EVERY 8HRS
     Route: 048
     Dates: start: 20100723, end: 20100729
  4. TRAMADOL HYDROCHLORIDE/ACETAMINOPHEN [Concomitant]
     Indication: ANALGESIC THERAPY
     Dosage: EVERY 8 HRS
     Route: 048
     Dates: start: 20100722, end: 20100729
  5. OMEPRAZOLE (PRISOLEC) [Concomitant]
     Indication: GASTRITIS PROPHYLAXIS
     Dosage: 40 MG
     Route: 042
     Dates: start: 20100721, end: 20100729

REACTIONS (9)
  - CARDIOGENIC SHOCK [None]
  - INTERVENTRICULAR SEPTUM RUPTURE [None]
  - CORONARY ARTERY THROMBOSIS [None]
  - ACUTE MYOCARDIAL INFARCTION [None]
  - VENTRICULAR DYSFUNCTION [None]
  - DUODENITIS [None]
  - DUODENAL ULCER [None]
  - MITRAL VALVE INCOMPETENCE [None]
  - PULSELESS ELECTRICAL ACTIVITY [None]
